FAERS Safety Report 18597933 (Version 1)
Quarter: 2020Q4

REPORT INFORMATION
  Report Type: Spontaneous
  Country: US (occurrence: US)
  Receive Date: 20201209
  Receipt Date: 20201209
  Transmission Date: 20210114
  Serious: No
  Sender: FDA-Public Use
  Company Number: US-009507513-2011USA007251

PATIENT
  Age: 68 Year
  Sex: Male

DRUGS (11)
  1. HYDROXYCHLOROQUINE SULFATE. [Concomitant]
     Active Substance: HYDROXYCHLOROQUINE SULFATE
     Dosage: 400 MG ORAL TWICE DAILY LOADING DOSE
     Route: 048
  2. TOCILIZUMAB. [Concomitant]
     Active Substance: TOCILIZUMAB
     Dosage: 8 MG/KG, ONCE
     Route: 042
  3. NOREPINEPHRINE. [Concomitant]
     Active Substance: NOREPINEPHRINE
     Indication: HYPOTENSION
  4. CIPROFLOXACIN. [Concomitant]
     Active Substance: CIPROFLOXACIN
     Dosage: UNK
     Route: 042
  5. STROMECTOL [Suspect]
     Active Substance: IVERMECTIN
     Indication: DISSEMINATED STRONGYLOIDIASIS
     Dosage: 200 MICROGRAM/KG ORALLY DAILY, 2 WEEK COURSE
     Route: 048
  6. HYDROXYCHLOROQUINE SULFATE. [Concomitant]
     Active Substance: HYDROXYCHLOROQUINE SULFATE
     Dosage: THEN 200 MG ORAL TWICE DAILY
     Route: 048
  7. METHYLPREDNISOLONE. [Concomitant]
     Active Substance: METHYLPREDNISOLONE
     Dosage: THREE COURSES: 40 MG INTRAVENOUS EVERY 8 HOURS
     Route: 042
  8. CEFAZOLIN [Concomitant]
     Active Substance: CEFAZOLIN
     Route: 042
  9. METRONIDAZOLE. [Concomitant]
     Active Substance: METRONIDAZOLE
     Route: 042
  10. VANCOMYCIN [Concomitant]
     Active Substance: VANCOMYCIN
     Route: 042
  11. CIPROFLOXACIN. [Concomitant]
     Active Substance: CIPROFLOXACIN
     Route: 042

REACTIONS (1)
  - Therapy non-responder [Unknown]
